FAERS Safety Report 6684212-2 (Version None)
Quarter: 2010Q2

REPORT INFORMATION
  Report Type: 
  Country: None (occurrence: None)
  Receive Date: 20100416
  Receipt Date: 20100316
  Transmission Date: 20101027
  Serious: No
  Sender: FDA-Public Use
  Company Number: US-BAYER-201013252BCC

PATIENT
  Age: 68 Year
  Sex: Male
  Weight: 136 kg

DRUGS (11)
  1. ALEVE (CAPLET) [Suspect]
     Indication: ARTHRALGIA
     Dosage: TOTAL DAILY DOSE: 440 MG  UNIT DOSE: 220 MG
     Route: 048
     Dates: start: 20100316
  2. POTASSIUM CHLORIDE [Concomitant]
     Route: 065
  3. FUROSEMIDE [Concomitant]
     Route: 065
  4. VITAMIN B1 TAB [Concomitant]
     Route: 065
  5. FOLIC ACID [Concomitant]
     Route: 065
  6. TRI-CHLOR [Concomitant]
     Route: 065
  7. VITAMIN C [Concomitant]
     Route: 065
  8. LISINOPRIL [Concomitant]
     Route: 065
  9. OMEPRAZOLE [Concomitant]
     Route: 065
  10. FISH OIL [Concomitant]
     Route: 065
  11. SEA OMEGA [Concomitant]
     Route: 065

REACTIONS (1)
  - ARTHRALGIA [None]
